FAERS Safety Report 5313401-4 (Version None)
Quarter: 2007Q2

REPORT INFORMATION
  Report Type: 
  Country: None (occurrence: None)
  Receive Date: 20070501
  Receipt Date: 20070420
  Transmission Date: 20071010
  Serious: Yes (Other)
  Sender: FDA-Public Use
  Company Number: US-JNJFOC-20070404501

PATIENT
  Sex: Male
  Weight: 87.09 kg

DRUGS (5)
  1. REMICADE [Suspect]
     Route: 042
  2. REMICADE [Suspect]
     Indication: RHEUMATOID ARTHRITIS
     Dosage: 1YEAR
     Route: 042
  3. PREDNISONE TAB [Suspect]
     Dosage: ^HIGH DOSE^
  4. PREDNISONE TAB [Suspect]
     Indication: RHEUMATOID ARTHRITIS
  5. HUMIRA [Concomitant]
     Indication: RHEUMATOID ARTHRITIS

REACTIONS (5)
  - FLUID RETENTION [None]
  - PAIN [None]
  - PHARYNGEAL OEDEMA [None]
  - PHARYNGITIS [None]
  - SWELLING [None]
